FAERS Safety Report 15196420 (Version 2)
Quarter: 2018Q3

REPORT INFORMATION
  Report Type: Report from Study
  Country: US (occurrence: US)
  Receive Date: 20180725
  Receipt Date: 20180810
  Transmission Date: 20181010
  Serious: Yes (Hospitalization)
  Sender: FDA-Public Use
  Company Number: US-BIOMARINAP-US-2018-119138

PATIENT
  Age: 18 Year
  Sex: Female
  Weight: 52.16 kg

DRUGS (1)
  1. KUVAN [Suspect]
     Active Substance: SAPROPTERIN DIHYDROCHLORIDE
     Indication: PHENYLKETONURIA
     Dosage: 19 MG/KG, QD
     Route: 048
     Dates: start: 20170813

REACTIONS (1)
  - Road traffic accident [Recovering/Resolving]

NARRATIVE: CASE EVENT DATE: 20180713
